FAERS Safety Report 9501204 (Version 3)
Quarter: 2013Q4

REPORT INFORMATION
  Report Type: Spontaneous
  Country: US (occurrence: None)
  Receive Date: 20130107
  Receipt Date: 20131226
  Transmission Date: 20140711
  Serious: Yes (Other)
  Sender: FDA-Public Use
  Company Number: PHEH2012US021430

PATIENT
  Age: 49 Year
  Sex: Female

DRUGS (6)
  1. GILENYA [Suspect]
     Indication: RELAPSING-REMITTING MULTIPLE SCLEROSIS
     Route: 048
     Dates: start: 20110128, end: 20121130
  2. METHYLPREDNISOLONE (METHYLPREDNISOLONE) [Concomitant]
  3. PREDNISONE (PREDNISONE) [Concomitant]
  4. VIVELLE-DOT (ESTRADIOL) [Concomitant]
  5. PROMETRIUM [Concomitant]
  6. CRESTOR (ROSUVASTATIN CALCIUM) [Concomitant]

REACTIONS (10)
  - Optic neuritis [None]
  - Eye infection [None]
  - Eye swelling [None]
  - Eyelid oedema [None]
  - Pain in extremity [None]
  - Eye inflammation [None]
  - Eye pain [None]
  - Abasia [None]
  - Sensory loss [None]
  - Headache [None]
